FAERS Safety Report 9744463 (Version 7)
Quarter: 2014Q3

REPORT INFORMATION
  Report Type: Report from Study
  Country: US (occurrence: US)
  Receive Date: 20131210
  Receipt Date: 20140926
  Transmission Date: 20150326
  Serious: Yes (Death, Hospitalization, Other)
  Sender: FDA-Public Use
  Company Number: US-ALEXION PHARMACEUTICALS INC.-A201304010

PATIENT

DRUGS (14)
  1. APHTHASOL 5% PASTE [Concomitant]
     Indication: RASH
     Dosage: UNK UNK, QD
     Route: 061
     Dates: start: 20120101
  2. MAG-OX [Concomitant]
     Indication: PRODUCT USED FOR UNKNOWN INDICATION
     Dosage: 400 MG, BID
     Route: 048
  3. NEORAL [Concomitant]
     Active Substance: CYCLOSPORINE
     Indication: IMMUNOSUPPRESSANT DRUG THERAPY
     Dosage: 225 MG, BID
     Route: 048
     Dates: start: 19960101, end: 20131115
  4. METOPROLOL XR [Interacting]
     Active Substance: METOPROLOL SUCCINATE
     Indication: HYPERTENSION
     Dosage: 75 MG, QD
     Route: 065
     Dates: start: 20050101, end: 20131116
  5. MAG-OX [Concomitant]
     Dosage: 800 UNK, UNK
     Route: 065
     Dates: start: 20130101
  6. CARDIZEM [Concomitant]
     Active Substance: DILTIAZEM HYDROCHLORIDE
     Indication: HYPERTENSION
     Dosage: 15 MG, QID
     Route: 065
     Dates: start: 20131204
  7. ATG                                /00575401/ [Concomitant]
     Active Substance: LAPINE T-LYMPHOCYTE IMMUNE GLOBULIN
     Indication: IMMUNOSUPPRESSANT DRUG THERAPY
     Dosage: UNK, QD
     Route: 065
     Dates: start: 19960101, end: 20080101
  8. METOPROLOL XR [Interacting]
     Active Substance: METOPROLOL SUCCINATE
     Dosage: 100 MG, QD
     Route: 065
     Dates: start: 20131116, end: 20131204
  9. SOLIRIS [Suspect]
     Active Substance: ECULIZUMAB
     Indication: PAROXYSMAL NOCTURNAL HAEMOGLOBINURIA
     Dosage: 900 MG, Q2W
     Route: 042
     Dates: start: 20130515, end: 20131126
  10. LIPITOR [Concomitant]
     Active Substance: ATORVASTATIN CALCIUM
     Indication: PRODUCT USED FOR UNKNOWN INDICATION
     Dosage: 10 MG, QOD
     Route: 048
     Dates: start: 20130101
  11. NORPACE [Concomitant]
     Active Substance: DISOPYRAMIDE PHOSPHATE
     Indication: HYPERTENSION
     Dosage: 200 MG, BID
     Route: 048
     Dates: start: 20050101, end: 20131204
  12. DIGOXIN. [Concomitant]
     Active Substance: DIGOXIN
     Indication: PRODUCT USED FOR UNKNOWN INDICATION
     Dosage: 25 MG, QD
     Route: 065
     Dates: start: 20131204
  13. METOPROLOL XR [Interacting]
     Active Substance: METOPROLOL SUCCINATE
     Dosage: 25 MG, BID
     Route: 065
     Dates: start: 20131204
  14. FOLVITE [Concomitant]
     Active Substance: FOLIC ACID
     Indication: PRODUCT USED FOR UNKNOWN INDICATION
     Dosage: 1 MG, QD
     Route: 048
     Dates: start: 20130101

REACTIONS (16)
  - Atrial fibrillation [Recovered/Resolved]
  - Anaemia [Unknown]
  - Oral candidiasis [Recovering/Resolving]
  - Myelodysplastic syndrome [Unknown]
  - Fungal infection [Not Recovered/Not Resolved]
  - Dysphonia [Not Recovered/Not Resolved]
  - Arthropathy [Recovering/Resolving]
  - Abdominal discomfort [Not Recovered/Not Resolved]
  - Pyrexia [Recovered/Resolved]
  - Stomatitis [Recovering/Resolving]
  - Unevaluable event [Unknown]
  - Platelet count decreased [Unknown]
  - Haemoglobin decreased [Unknown]
  - Death [Fatal]
  - Haematocrit decreased [Unknown]
  - Dysphagia [Recovering/Resolving]

NARRATIVE: CASE EVENT DATE: 20131114
